FAERS Safety Report 10241056 (Version 1)
Quarter: 2014Q1

REPORT INFORMATION
  Report Type: Spontaneous
  Country: US (occurrence: None)
  Receive Date: 20140306
  Receipt Date: 20140306
  Transmission Date: 20141002
  Serious: Yes (Hospitalization)
  Sender: FDA-Public Use
  Company Number: 163-21880-13123238

PATIENT
  Age: 72 Year
  Sex: Male
  Weight: 50.8 kg

DRUGS (8)
  1. REVLIMID (LENALIDOMIDE) (25 MILLIGRAM, CAPSULES) [Suspect]
     Indication: PLASMA CELL MYELOMA IN REMISSION
     Route: 048
     Dates: start: 201101
  2. CENTRUM SILVER (CENTRUM SILVER) (TABLETS) [Concomitant]
  3. B 12 (CYANOCOBALAMIN) (TABLETS) [Concomitant]
  4. MIRALAX (MACROGOL) (POWDER) [Concomitant]
  5. PANTOPRAZOLE SODIUM (PANTOPRAZOLE) [Concomitant]
  6. FENTANYL (FENTANYL) (POULTICE OR PATCH) [Concomitant]
  7. GABAPENTIN (GABAPENTIN) (CAPSULES) [Concomitant]
  8. HYDROCODONE/ACETAMINOPHEN (REMEDEINE) (UNKNOWN) [Concomitant]

REACTIONS (1)
  - Plasma cell myeloma [None]
